FAERS Safety Report 16238286 (Version 2)
Quarter: 2019Q2

REPORT INFORMATION
  Report Type: Spontaneous
  Country: US (occurrence: US)
  Receive Date: 20190425
  Receipt Date: 20190628
  Transmission Date: 20190711
  Serious: No
  Sender: FDA-Public Use
  Company Number: US-PFIZER INC-2019172966

PATIENT
  Age: 58 Year
  Sex: Female

DRUGS (2)
  1. LETROZOLE. [Concomitant]
     Active Substance: LETROZOLE
     Indication: BREAST CANCER RECURRENT
     Dosage: 2.5 MG, 1X/DAY
     Dates: start: 201810
  2. IBRANCE [Suspect]
     Active Substance: PALBOCICLIB
     Indication: BREAST CANCER RECURRENT
     Dosage: 125 MG, 1X/DAY
     Dates: start: 201810

REACTIONS (1)
  - Depression [Not Recovered/Not Resolved]
